FAERS Safety Report 4287014-X (Version None)
Quarter: 2004Q1

REPORT INFORMATION
  Report Type: 
  Country: None (occurrence: None)
  Receive Date: 20040205
  Receipt Date: 20040127
  Transmission Date: 20041129
  Serious: Yes (Hospitalization, Other)
  Sender: FDA-Public Use
  Company Number: USA-2004-0012677

PATIENT
  Age: 56 Year
  Sex: Male

DRUGS (2)
  1. OXYCONTIN [Suspect]
     Dosage: INTRAVENOUS
     Route: 042
  2. DILAUDID [Concomitant]

REACTIONS (3)
  - DRUG ABUSER [None]
  - ENDOCARDITIS [None]
  - MEDICATION ERROR [None]
